FAERS Safety Report 21625062 (Version 1)
Quarter: 2022Q4

REPORT INFORMATION
  Report Type: Spontaneous
  Country: JP (occurrence: JP)
  Receive Date: 20221122
  Receipt Date: 20221122
  Transmission Date: 20230113
  Serious: Yes (Other)
  Sender: FDA-Public Use
  Company Number: JP-SUN PHARMACEUTICAL INDUSTRIES LTD-2020R1-254051

PATIENT
  Age: 24 Year
  Sex: Male

DRUGS (2)
  1. INFLIXIMAB [Suspect]
     Active Substance: INFLIXIMAB
     Indication: Crohn^s disease
     Dosage: 6 MILLIGRAM/KILOGRAM, MONTHLY
     Route: 065
     Dates: end: 201808
  2. MESALAMINE [Suspect]
     Active Substance: MESALAMINE
     Indication: Crohn^s disease
     Dosage: 3000 MILLIGRAM, DAILY
     Route: 048

REACTIONS (4)
  - Drug resistance [Unknown]
  - Haematochezia [Unknown]
  - Diarrhoea [Unknown]
  - Weight decreased [Unknown]
